FAERS Safety Report 11738246 (Version 6)
Quarter: 2015Q4

REPORT INFORMATION
  Report Type: Report from Study
  Country: CA (occurrence: CA)
  Receive Date: 20151113
  Receipt Date: 20151222
  Transmission Date: 20160304
  Serious: Yes (Hospitalization)
  Sender: FDA-Public Use
  Company Number: CA-PFIZER INC-2015375990

PATIENT
  Age: 41 Year
  Sex: Male
  Weight: 102.2 kg

DRUGS (4)
  1. PREDNISONE. [Suspect]
     Active Substance: PREDNISONE
     Indication: DIVERTICULITIS
     Dosage: 40 MG, 1X/DAY
     Route: 048
     Dates: start: 20150423
  2. METFORMIN [Concomitant]
     Active Substance: METFORMIN HYDROCHLORIDE
     Indication: TYPE 2 DIABETES MELLITUS
     Dosage: UNK
     Dates: start: 20111024
  3. HYDROMORPHONE [Concomitant]
     Active Substance: HYDROMORPHONE
     Indication: DIVERTICULITIS
     Dosage: UNK
     Route: 048
     Dates: start: 20150318, end: 20151110
  4. TOFACITINIB CITRATE [Suspect]
     Active Substance: TOFACITINIB CITRATE
     Indication: PSORIASIS
     Dosage: 10 MG, 2X/DAY
     Route: 048
     Dates: start: 20111102, end: 201504

REACTIONS (1)
  - Colonic abscess [Recovering/Resolving]

NARRATIVE: CASE EVENT DATE: 20151027
